FAERS Safety Report 19743692 (Version 2)
Quarter: 2021Q3

REPORT INFORMATION
  Report Type: Spontaneous
  Country: US (occurrence: US)
  Receive Date: 20210824
  Receipt Date: 20210917
  Transmission Date: 20211014
  Serious: No
  Sender: FDA-Public Use
  Company Number: US-009507513-2108USA006002

PATIENT
  Age: 73 Year
  Sex: Female

DRUGS (3)
  1. PRAVASTATIN. [Concomitant]
     Active Substance: PRAVASTATIN
  2. EVISTA [Concomitant]
     Active Substance: RALOXIFENE HYDROCHLORIDE
  3. DIFICID [Suspect]
     Active Substance: FIDAXOMICIN
     Dosage: 200 MILLIGRAM, TWICE A DAY
     Route: 048

REACTIONS (4)
  - No adverse event [Unknown]
  - Product colour issue [Unknown]
  - Poor quality product administered [Unknown]
  - Product commingling [Unknown]

NARRATIVE: CASE EVENT DATE: 20210819
